FAERS Safety Report 25616479 (Version 1)
Quarter: 2025Q3

REPORT INFORMATION
  Report Type: Spontaneous
  Country: CN (occurrence: CN)
  Receive Date: 20250729
  Receipt Date: 20250729
  Transmission Date: 20251021
  Serious: Yes (Other)
  Sender: BAXTER
  Company Number: None

PATIENT
  Age: 62 Year
  Sex: Female
  Weight: 60 kg

DRUGS (6)
  1. CYCLOPHOSPHAMIDE [Suspect]
     Active Substance: CYCLOPHOSPHAMIDE
     Indication: Breast cancer female
     Dosage: 0.6 G, QD
     Route: 041
     Dates: start: 20250710, end: 20250710
  2. SODIUM CHLORIDE [Suspect]
     Active Substance: SODIUM CHLORIDE
     Dosage: 250 ML, QD (0.9 % INJECTION WITH DOCETAXEL INJECTION GROUP SOLUTION)
     Route: 041
     Dates: start: 20250710, end: 20250710
  3. SODIUM CHLORIDE [Suspect]
     Active Substance: SODIUM CHLORIDE
     Dosage: 500 ML, QD (0.9 % INJECTION WITH CYCLOPHOSPHAMIDE INJECTION GROUP SOLUTION)
     Route: 041
     Dates: start: 20250710, end: 20250710
  4. SODIUM CHLORIDE [Suspect]
     Active Substance: SODIUM CHLORIDE
     Dosage: 500 ML, QD (0.9 % INJECTION WITH DOXORUBICIN HYDROCHLORIDE INJECTION GROUP SOLUTION)
     Route: 041
     Dates: start: 20250710, end: 20250710
  5. DOCETAXEL [Suspect]
     Active Substance: DOCETAXEL
     Indication: Breast cancer female
     Dosage: 100 MG, QD
     Route: 041
     Dates: start: 20250710, end: 20250710
  6. DOXORUBICIN HYDROCHLORIDE [Suspect]
     Active Substance: DOXORUBICIN HYDROCHLORIDE
     Indication: Breast cancer female
     Dosage: 50 MG, QD
     Route: 041
     Dates: start: 20250710, end: 20250710

REACTIONS (1)
  - White blood cell count decreased [Recovering/Resolving]

NARRATIVE: CASE EVENT DATE: 20250714
